FAERS Safety Report 7959888-X (Version None)
Quarter: 2011Q4

REPORT INFORMATION
  Report Type: 
  Country: None (occurrence: None)
  Receive Date: 20111206
  Receipt Date: 20111129
  Transmission Date: 20120403
  Serious: Yes (Death, Hospitalization, Other)
  Sender: FDA-Public Use
  Company Number: PHHY2011IT105948

PATIENT
  Age: 64 Year
  Sex: Male

DRUGS (4)
  1. BASILIXIMAB [Suspect]
     Indication: LIVER TRANSPLANT
     Dosage: 2 MG, UNK
     Route: 042
  2. PREDNISONE TAB [Suspect]
     Indication: LIVER TRANSPLANT
     Dosage: 25 MG/DAY
  3. TACROLIMUS [Suspect]
     Indication: LIVER TRANSPLANT
     Dosage: UNK UKN, UNK
  4. METHYLPREDNISOLONE [Suspect]
     Indication: LIVER TRANSPLANT
     Dosage: 500 MG, UNK
     Route: 042

REACTIONS (12)
  - RENAL FAILURE [None]
  - HUMAN HERPESVIRUS 8 INFECTION [None]
  - HEPATIC FAILURE [None]
  - CHOLANGITIS [None]
  - CHOLESTASIS [None]
  - BILIARY DILATATION [None]
  - HEPATITIS C [None]
  - LIVER TRANSPLANT REJECTION [None]
  - MULTI-ORGAN FAILURE [None]
  - ASCITES [None]
  - BILIARY ANASTOMOSIS COMPLICATION [None]
  - HEPATIC FUNCTION ABNORMAL [None]
